FAERS Safety Report 12384028 (Version 2)
Quarter: 2016Q2

REPORT INFORMATION
  Report Type: Spontaneous
  Country: US (occurrence: US)
  Receive Date: 20160519
  Receipt Date: 20160627
  Transmission Date: 20160815
  Serious: Yes (Other)
  Sender: FDA-Public Use
  Company Number: US-JNJCP-30000332435

PATIENT
  Age: 57 Year
  Sex: Male

DRUGS (1)
  1. NEUTROGENA AGE SHIELD FACE SPF 70 [Suspect]
     Active Substance: AVOBENZONE\HOMOSALATE\OCTISALATE\OCTOCRYLENE\OXYBENZONE
     Indication: PROPHYLAXIS
     Dosage: DIME-SIZED AMOUNT ONCE A DAY, USED ONLY ONCE
     Route: 061
     Dates: start: 20160405, end: 20160405

REACTIONS (2)
  - Dermatitis contact [Not Recovered/Not Resolved]
  - Product lot number issue [Unknown]

NARRATIVE: CASE EVENT DATE: 20160406
